FAERS Safety Report 6750584-3 (Version None)
Quarter: 2010Q2

REPORT INFORMATION
  Report Type: 
  Country: None (occurrence: None)
  Receive Date: 20100528
  Receipt Date: 20100528
  Transmission Date: 20101027
  Serious: Yes (Other)
  Sender: FDA-Public Use
  Company Number: None

PATIENT
  Sex: Male

DRUGS (1)
  1. DIVALPROEX SODIUM [Suspect]
     Dosage: 125 MG 13/DAY PO
     Route: 048

REACTIONS (2)
  - CONDITION AGGRAVATED [None]
  - CONVULSION [None]
